FAERS Safety Report 15623942 (Version 1)
Quarter: 2018Q4

REPORT INFORMATION
  Report Type: Spontaneous
  Country: GR (occurrence: GR)
  Receive Date: 20181116
  Receipt Date: 20181116
  Transmission Date: 20190205
  Serious: Yes (Other)
  Sender: FDA-Public Use
  Company Number: GR-RICON PHARMA, LLC-RIC201811-001063

PATIENT
  Age: 47 Year
  Sex: Male

DRUGS (6)
  1. MIDAZOLAM [Suspect]
     Active Substance: MIDAZOLAM HYDROCHLORIDE
  2. VECURONIUM [Suspect]
     Active Substance: VECURONIUM BROMIDE
  3. PROPOFOL. [Suspect]
     Active Substance: PROPOFOL
  4. SEVOFLURANE. [Suspect]
     Active Substance: SEVOFLURANE
  5. DICLOFENAC SODIUM. [Suspect]
     Active Substance: DICLOFENAC SODIUM
     Route: 030
  6. FENTANYL. [Suspect]
     Active Substance: FENTANYL

REACTIONS (2)
  - Anaphylactic shock [Recovered/Resolved]
  - Kounis syndrome [Recovered/Resolved]
